FAERS Safety Report 17697609 (Version 2)
Quarter: 2020Q4

REPORT INFORMATION
  Report Type: Spontaneous
  Country: US (occurrence: US)
  Receive Date: 20200423
  Receipt Date: 20201123
  Transmission Date: 20210113
  Serious: Yes (Hospitalization, Other)
  Sender: FDA-Public Use
  Company Number: US-ELI_LILLY_AND_COMPANY-US202004006153

PATIENT
  Sex: Female

DRUGS (16)
  1. HUMALOG [Suspect]
     Active Substance: INSULIN LISPRO
     Dosage: 7 U, PRN (BEFORE EACH MEAL)
     Route: 065
  2. HUMALOG [Suspect]
     Active Substance: INSULIN LISPRO
     Dosage: 6 U, TID
     Route: 058
  3. BASAGLAR [Suspect]
     Active Substance: INSULIN GLARGINE
     Indication: TYPE 2 DIABETES MELLITUS
     Dosage: UNK UNK, UNKNOWN
     Route: 065
  4. LANTUS [Concomitant]
     Active Substance: INSULIN GLARGINE
     Indication: PRODUCT USED FOR UNKNOWN INDICATION
     Dosage: UNK
  5. BASAGLAR [Suspect]
     Active Substance: INSULIN GLARGINE
     Indication: TYPE 2 DIABETES MELLITUS
     Dosage: UNK UNK, UNKNOWN
     Route: 065
  6. HUMALOG [Suspect]
     Active Substance: INSULIN LISPRO
     Indication: TYPE 2 DIABETES MELLITUS
     Dosage: 7 U, PRN (BEFORE EACH MEAL)
     Route: 065
     Dates: start: 20200312
  7. METFORMIN [Concomitant]
     Active Substance: METFORMIN HYDROCHLORIDE
     Indication: TYPE 2 DIABETES MELLITUS
     Dosage: 2 DOSAGE FORM, DAILY
     Route: 065
  8. BASAGLAR [Suspect]
     Active Substance: INSULIN GLARGINE
     Dosage: 8 U, DAILY, AT BEDTIME
     Route: 058
  9. HUMALOG [Suspect]
     Active Substance: INSULIN LISPRO
     Dosage: 6 U, TID
     Route: 058
  10. PLAQUENIL [Concomitant]
     Active Substance: HYDROXYCHLOROQUINE SULFATE
     Indication: RHEUMATOID ARTHRITIS
     Dosage: UNK
  11. BASAGLAR [Suspect]
     Active Substance: INSULIN GLARGINE
     Dosage: UNK UNK, UNKNOWN
     Route: 065
  12. BASAGLAR [Suspect]
     Active Substance: INSULIN GLARGINE
     Dosage: 8 U, DAILY, AT BEDTIME
     Route: 058
  13. HUMALOG [Suspect]
     Active Substance: INSULIN LISPRO
     Dosage: 7 U, PRN (BEFORE EACH MEAL)
     Route: 065
  14. HUMALOG [Suspect]
     Active Substance: INSULIN LISPRO
     Dosage: 6 U, TID
     Route: 058
  15. BASAGLAR [Suspect]
     Active Substance: INSULIN GLARGINE
     Dosage: UNK UNK, UNKNOWN
     Route: 065
  16. HUMALOG [Suspect]
     Active Substance: INSULIN LISPRO
     Indication: TYPE 2 DIABETES MELLITUS
     Dosage: 7 U, PRN (BEFORE EACH MEAL)
     Route: 065
     Dates: start: 20200312

REACTIONS (7)
  - Blood glucose increased [Unknown]
  - Drug ineffective [Unknown]
  - Expired product administered [Recovering/Resolving]
  - Vision blurred [Unknown]
  - Pneumonia [Recovering/Resolving]
  - Sepsis [Recovering/Resolving]
  - Cardiac failure [Recovering/Resolving]
